FAERS Safety Report 23650777 (Version 1)
Quarter: 2024Q1

REPORT INFORMATION
  Report Type: Spontaneous
  Country: FR (occurrence: FR)
  Receive Date: 20240320
  Receipt Date: 20240320
  Transmission Date: 20240410
  Serious: Yes (Hospitalization, Other)
  Sender: FDA-Public Use
  Company Number: None

PATIENT
  Age: 67 Year
  Sex: Female
  Weight: 52 kg

DRUGS (13)
  1. AMOXICILLIN [Suspect]
     Active Substance: AMOXICILLIN
     Indication: Device related infection
     Dosage: AMOXICILLINE
     Route: 048
     Dates: start: 202311, end: 20240126
  2. BROMAZEPAM [Concomitant]
     Active Substance: BROMAZEPAM
     Indication: Depression
     Dosage: 1/4-1/4-1/2, QUADRI SCORED TABLET
     Route: 048
  3. LIPTRUZET [Concomitant]
     Active Substance: ATORVASTATIN CALCIUM\EZETIMIBE
     Indication: Dyslipidaemia
     Dosage: 10 MG/40 MG
     Route: 048
  4. CALCIFORTE VITAMINE D3 [Concomitant]
     Indication: Osteoporosis
     Dosage: CHEWABLE, SUCKABLE OR DISPERSIBLE TABLET
     Route: 048
  5. PANTOPRAZOLE [Concomitant]
     Active Substance: PANTOPRAZOLE
     Indication: Gastritis prophylaxis
     Route: 048
  6. TRELEGY ELLIPTA [Concomitant]
     Active Substance: FLUTICASONE FUROATE\UMECLIDINIUM BROMIDE\VILANTEROL TRIFENATATE
     Indication: Chronic obstructive pulmonary disease
     Dosage: 92 MICROGRAMS/55 MICROGRAMS/22 MICROGRAMS, POWDER FOR INHALATION IN SINGLE-DOSE CONTAINER.
     Route: 055
  7. LINEZOLID [Suspect]
     Active Substance: LINEZOLID
     Indication: Device related infection
     Route: 048
     Dates: start: 202311, end: 20240126
  8. QUETIAPINE FUMARATE [Concomitant]
     Active Substance: QUETIAPINE FUMARATE
     Indication: Depression
     Dosage: 0-0-1-1?XEROQUEL LP
     Route: 048
  9. CANDESARTAN CILEXETIL [Concomitant]
     Active Substance: CANDESARTAN CILEXETIL
     Indication: Hypertension
     Route: 048
  10. PAROXETINE HYDROCHLORIDE [Concomitant]
     Active Substance: PAROXETINE HYDROCHLORIDE\PAROXETINE HYDROCHLORIDE ANHYDROUS
     Indication: Depression
     Dosage: THE MORNING
     Route: 048
  11. LOXEN [Concomitant]
     Indication: Hypertension
     Dosage: SCORED TABLET
     Route: 048
  12. KARDEGIC [Concomitant]
     Active Substance: ASPIRIN DL-LYSINE
     Indication: Cardiovascular event prophylaxis
     Dosage: POWDER FOR ORAL SOLUTION IN SACHET-DOSE
     Route: 048
  13. LUMIGAN [Concomitant]
     Active Substance: BIMATOPROST
     Indication: Glaucoma
     Dosage: EYE DROPS SOLUTION
     Route: 031

REACTIONS (3)
  - Aplastic anaemia [Recovered/Resolved]
  - Neuropathy peripheral [Recovering/Resolving]
  - Visual acuity reduced [Not Recovered/Not Resolved]

NARRATIVE: CASE EVENT DATE: 20240101
